FAERS Safety Report 17802653 (Version 5)
Quarter: 2020Q3

REPORT INFORMATION
  Report Type: Report from Study
  Country: DE (occurrence: DE)
  Receive Date: 20200519
  Receipt Date: 20200925
  Transmission Date: 20201102
  Serious: Yes (Hospitalization, Other)
  Sender: FDA-Public Use
  Company Number: DE-TEVA-2020-DE-1235679

PATIENT
  Age: 59 Year
  Sex: Female

DRUGS (17)
  1. TORASEMIDE [Suspect]
     Active Substance: TORSEMIDE
     Dosage: 5 MILLIGRAM DAILY;
     Route: 048
     Dates: start: 20190830, end: 20190919
  2. XARELTO [Suspect]
     Active Substance: RIVAROXABAN
     Indication: PROPHYLAXIS
     Dosage: 20 MILLIGRAM DAILY;
     Route: 048
     Dates: start: 20190409, end: 20190429
  3. DELIX (RAMIPRIL) [Suspect]
     Active Substance: RAMIPRIL
     Dosage: 5 MILLIGRAM DAILY; THERAPY END DATE : ASKU
     Route: 048
     Dates: start: 20190117
  4. ALLOPURINOL. [Concomitant]
     Active Substance: ALLOPURINOL
     Dosage: 300 MILLIGRAM DAILY;
     Route: 048
     Dates: start: 20190117, end: 20190419
  5. AMOCLAV [AMOXICILLIN TRIHYDRATE;CLAVULANATE POTASSIUM] [Concomitant]
     Active Substance: AMOXICILLIN\CLAVULANATE POTASSIUM
     Indication: PROPHYLAXIS
     Dosage: 250 MILLIGRAM DAILY;
     Route: 048
     Dates: start: 20190409, end: 20190414
  6. ACICLOVIR [Suspect]
     Active Substance: ACYCLOVIR
     Indication: PROPHYLAXIS
     Dosage: 1200 MILLIGRAM DAILY; THERAPY END DATE : ASKU
     Route: 048
     Dates: start: 20190108
  7. PLERIXAFOR [Suspect]
     Active Substance: PLERIXAFOR
     Indication: PLASMA CELL MYELOMA
     Dosage: UNK UNK, QD
     Route: 058
     Dates: start: 20190505, end: 20190505
  8. TILIDINE [Suspect]
     Active Substance: TILIDINE
     Dosage: UNK
     Route: 065
  9. METFORMIN HYDROCHLORIDE. [Suspect]
     Active Substance: METFORMIN HYDROCHLORIDE
     Dosage: 850 MILLIGRAM DAILY;
     Route: 048
     Dates: start: 20190830, end: 20190919
  10. AMPHO?MORONAL [Suspect]
     Active Substance: AMPHOTERICIN B
     Indication: PROPHYLAXIS
     Dosage: THERAPY END DATE : ASKU,
     Route: 048
     Dates: start: 20190830
  11. JANUMET [Concomitant]
     Active Substance: METFORMIN HYDROCHLORIDE\SITAGLIPTIN PHOSPHATE
     Dosage: 2000 MILLIGRAM DAILY;
     Route: 048
     Dates: start: 20190117, end: 20190419
  12. CLINDAMYCIN. [Concomitant]
     Active Substance: CLINDAMYCIN
     Indication: PROPHYLAXIS
     Dosage: 1200 MILLIGRAM DAILY;
     Route: 048
     Dates: start: 20190117, end: 20190123
  13. COTRIMOXAZOLE [Suspect]
     Active Substance: SULFAMETHOXAZOLE\TRIMETHOPRIM
     Indication: PROPHYLAXIS
     Dosage: 960 MG, TIW,  THERAPY END DATE : ASKU
     Route: 048
     Dates: start: 20190108
  14. PLERIXAFOR [Suspect]
     Active Substance: PLERIXAFOR
     Dosage: .24 MG/KG DAILY;
     Route: 058
     Dates: start: 20190507, end: 20190507
  15. AMPHO?MORONAL [Concomitant]
     Active Substance: AMPHOTERICIN B
     Indication: PROPHYLAXIS
     Dosage: FOUR TIMES DAILY
     Route: 048
     Dates: start: 20190108, end: 20190409
  16. TILIDINE [Suspect]
     Active Substance: TILIDINE
     Dosage: 8 MG, BID (ONCE IN 12 HOURS)
     Route: 048
     Dates: start: 20190830, end: 20190919
  17. PANTOZOL [Suspect]
     Active Substance: PANTOPRAZOLE SODIUM
     Indication: PROPHYLAXIS
     Dosage: 40 MILLIGRAM DAILY; THERAPY END DATE : ASKU
     Route: 048
     Dates: start: 20190117

REACTIONS (2)
  - Febrile neutropenia [Recovered/Resolved]
  - Escherichia infection [Recovered/Resolved]

NARRATIVE: CASE EVENT DATE: 20190902
